FAERS Safety Report 7418274-1 (Version None)
Quarter: 2011Q2

REPORT INFORMATION
  Report Type: 
  Country: None (occurrence: None)
  Receive Date: 20110415
  Receipt Date: 20110402
  Transmission Date: 20111010
  Serious: Yes (Other)
  Sender: FDA-Public Use
  Company Number: IT-PAR PHARMACEUTICAL, INC-2011SCPR002853

PATIENT
  Age: 71 Year
  Sex: Female

DRUGS (4)
  1. LENALIDOMIDE [Suspect]
     Indication: DIFFUSE LARGE B-CELL LYMPHOMA
     Dosage: 25 MG, ONCE A DAY
     Route: 065
  2. DEXAMETHASONE [Suspect]
     Dosage: 10 MG, WEEKLY
     Route: 048
  3. LENALIDOMIDE [Suspect]
     Dosage: 15 MG, QD
     Route: 048
  4. DEXAMETHASONE [Suspect]
     Indication: DIFFUSE LARGE B-CELL LYMPHOMA
     Dosage: 20 MG, WEEKLY
     Route: 065

REACTIONS (2)
  - NEUTROPENIA [None]
  - FATIGUE [None]
